FAERS Safety Report 11830769 (Version 1)
Quarter: 2015Q4

REPORT INFORMATION
  Report Type: Spontaneous
  Country: US (occurrence: US)
  Receive Date: 20151214
  Receipt Date: 20151214
  Transmission Date: 20160305
  Serious: No
  Sender: FDA-Public Use
  Company Number: US-ZYDUS-008842

PATIENT
  Age: 64 Year
  Sex: Female

DRUGS (3)
  1. FAMOTIDINE. [Concomitant]
     Active Substance: FAMOTIDINE
  2. BENAZEPRIL [Concomitant]
     Active Substance: BENAZEPRIL HYDROCHLORIDE
  3. OMEPRAZOLE. [Suspect]
     Active Substance: OMEPRAZOLE
     Indication: GASTROOESOPHAGEAL REFLUX DISEASE
     Route: 048
     Dates: start: 201505, end: 201508

REACTIONS (7)
  - Barrett^s oesophagus [None]
  - Polyp [None]
  - Product substitution issue [None]
  - Dysphagia [Not Recovered/Not Resolved]
  - Nausea [Recovered/Resolved]
  - Abnormal loss of weight [Recovered/Resolved]
  - Blood potassium decreased [None]

NARRATIVE: CASE EVENT DATE: 201505
